FAERS Safety Report 4712398-5 (Version None)
Quarter: 2005Q3

REPORT INFORMATION
  Report Type: 
  Country: None (occurrence: None)
  Receive Date: 20050711
  Receipt Date: 20050707
  Transmission Date: 20060218
  Serious: Yes (Hospitalization, Other)
  Sender: FDA-Public Use
  Company Number: HQWYE343509JUN05

PATIENT
  Age: 87 Year
  Sex: Female

DRUGS (7)
  1. CORDARONE [Suspect]
     Indication: ATRIAL FIBRILLATION
     Dosage: 200 MG, ORAL
     Route: 048
     Dates: end: 20050504
  2. CORDARONE [Suspect]
     Indication: ATRIAL FIBRILLATION
     Dosage: 200 MG, ORAL
     Route: 048
     Dates: start: 20050101
  3. CLONIDINE [Concomitant]
  4. POTASSIUM CHLORIDE [Concomitant]
  5. XYZALL (LEVOCETIRIZINE) [Concomitant]
  6. INSULIN MIXTARD (INSULIN INJECTION, ISOPHANE) [Concomitant]
  7. LASIX [Concomitant]

REACTIONS (3)
  - CONDITION AGGRAVATED [None]
  - ECZEMA [None]
  - GUTTATE PSORIASIS [None]
